FAERS Safety Report 24606415 (Version 1)
Quarter: 2024Q4

REPORT INFORMATION
  Report Type: Spontaneous
  Country: US (occurrence: US)
  Receive Date: 20241112
  Receipt Date: 20241112
  Transmission Date: 20250115
  Serious: No
  Sender: PADAGIS
  Company Number: US-PADAGIS-2024PAD01724

PATIENT

DRUGS (11)
  1. CETIRIZINE HYDROCHLORIDE [Suspect]
     Active Substance: CETIRIZINE HYDROCHLORIDE
     Indication: Erythromelalgia
     Dosage: 20 MG, BID
     Route: 065
  2. GABAPENTIN [Suspect]
     Active Substance: GABAPENTIN
     Indication: Erythromelalgia
     Dosage: 300 MG, TID
     Route: 065
  3. GABAPENTIN [Suspect]
     Active Substance: GABAPENTIN
     Dosage: COMPOUNDED GABAPENTIN 6 PERCENT TOPICAL CREAM
     Route: 061
  4. GABAPENTIN [Suspect]
     Active Substance: GABAPENTIN
     Dosage: 1200 MG, TID
     Route: 065
  5. DIPHENHYDRAMINE [Suspect]
     Active Substance: DIPHENHYDRAMINE
     Indication: Erythromelalgia
     Dosage: 100 MG, QD NIGHTLY
     Route: 065
  6. OXYMETAZOLINE [Suspect]
     Active Substance: OXYMETAZOLINE
     Indication: Erythromelalgia
     Dosage: UNK
     Route: 061
  7. COLCHICINE [Concomitant]
     Active Substance: COLCHICINE
     Indication: Erythromelalgia
     Dosage: 0.6 MG, BID
     Route: 065
  8. CROMOLYN SODIUM [Concomitant]
     Active Substance: CROMOLYN SODIUM
     Indication: Erythromelalgia
     Dosage: 200MG (10 ML) 4 TIMES DAILY
     Route: 065
  9. HYDROXYZINE [Concomitant]
     Active Substance: HYDROXYZINE HYDROCHLORIDE
     Indication: Erythromelalgia
     Dosage: 250-300 MG DAILY
     Route: 065
  10. PENTOXIFYLLINE [Concomitant]
     Active Substance: PENTOXIFYLLINE
     Indication: Erythromelalgia
     Dosage: 400 MG, TID
     Route: 065
  11. AMITRIPTYLINE;KETAMINE [Concomitant]
     Indication: Erythromelalgia
     Dosage: UNK
     Route: 065

REACTIONS (2)
  - Therapy partial responder [Unknown]
  - Product use in unapproved indication [Unknown]
